FAERS Safety Report 10678245 (Version 1)
Quarter: 2014Q4

REPORT INFORMATION
  Report Type: Spontaneous
  Country: US (occurrence: US)
  Receive Date: 20141229
  Receipt Date: 20141229
  Transmission Date: 20150529
  Serious: Yes (Other)
  Sender: FDA-Public Use
  Company Number: PHHY2014US166237

PATIENT
  Age: 11 Year
  Sex: Male

DRUGS (12)
  1. GUANFACINE. [Concomitant]
     Active Substance: GUANFACINE
     Dosage: 1.5 MG, (0.5 MG IN AFTERNOON AND 1MG AT BEDTIME)
     Route: 048
  2. ARIPIPRAZOLE. [Concomitant]
     Active Substance: ARIPIPRAZOLE
     Indication: PRODUCT USED FOR UNKNOWN INDICATION
     Route: 065
  3. GUANFACINE. [Concomitant]
     Active Substance: GUANFACINE
     Indication: IMPULSIVE BEHAVIOUR
     Dosage: 0.5 MG, BID
     Route: 048
  4. METHYLPHENIDATE [Suspect]
     Active Substance: METHYLPHENIDATE
     Dosage: 54 MG, QD
     Route: 048
  5. ZIPRASIDONE [Concomitant]
     Active Substance: ZIPRASIDONE
     Indication: PRODUCT USED FOR UNKNOWN INDICATION
     Route: 065
  6. DIPHENHYDRAMINE [Concomitant]
     Active Substance: DIPHENHYDRAMINE
     Indication: POOR QUALITY SLEEP
     Route: 065
  7. OLANZAPINE. [Concomitant]
     Active Substance: OLANZAPINE
     Indication: AGGRESSION
     Route: 065
  8. METHYLPHENIDATE [Suspect]
     Active Substance: METHYLPHENIDATE
     Dosage: 18 MG, QD
     Route: 048
  9. METHYLPHENIDATE [Suspect]
     Active Substance: METHYLPHENIDATE
     Dosage: 5 MG, UNK
     Route: 048
  10. CLONIDINE. [Concomitant]
     Active Substance: CLONIDINE
     Indication: PRODUCT USED FOR UNKNOWN INDICATION
     Route: 065
  11. METHYLPHENIDATE [Suspect]
     Active Substance: METHYLPHENIDATE
     Indication: IMPULSE-CONTROL DISORDER
     Route: 048
  12. METHYLPHENIDATE [Suspect]
     Active Substance: METHYLPHENIDATE
     Dosage: 54 MG, UNK
     Route: 048

REACTIONS (7)
  - Initial insomnia [Recovering/Resolving]
  - Attention deficit/hyperactivity disorder [Recovering/Resolving]
  - Emotional disorder [Recovering/Resolving]
  - Fatigue [Recovering/Resolving]
  - Anxiety [Recovering/Resolving]
  - Rebound effect [Unknown]
  - Impulsive behaviour [Recovering/Resolving]
